FAERS Safety Report 6043819-6 (Version None)
Quarter: 2009Q1

REPORT INFORMATION
  Report Type: 
  Country: None (occurrence: None)
  Receive Date: 20090120
  Receipt Date: 20090109
  Transmission Date: 20090719
  Serious: Yes (Hospitalization, Other)
  Sender: FDA-Public Use
  Company Number: US-AMGEN-QUU267239

PATIENT
  Sex: Female
  Weight: 69.5 kg

DRUGS (6)
  1. ENBREL [Suspect]
     Indication: RHEUMATOID ARTHRITIS
     Route: 058
     Dates: start: 20010301
  2. SYNTHROID [Concomitant]
  3. LEXAPRO [Concomitant]
  4. METHOTREXATE [Concomitant]
  5. CHANTIX [Concomitant]
  6. UNSPECIFIED NUTRITIONAL SUPPLEMENT [Concomitant]

REACTIONS (23)
  - APPENDICITIS PERFORATED [None]
  - BREAST INJURY [None]
  - BRONCHITIS [None]
  - CARCINOID TUMOUR [None]
  - CHEST DISCOMFORT [None]
  - CONSTIPATION [None]
  - COUGH [None]
  - DIVERTICULUM INTESTINAL [None]
  - EAR CONGESTION [None]
  - ENTEROCOCCAL INFECTION [None]
  - FALL [None]
  - FOOT FRACTURE [None]
  - HAEMORRHOID OPERATION [None]
  - HYPOTHYROIDISM [None]
  - INCISION SITE HAEMATOMA [None]
  - LIVER FUNCTION TEST ABNORMAL [None]
  - MUSCULOSKELETAL CHEST PAIN [None]
  - MYALGIA [None]
  - PELVIC ABSCESS [None]
  - POST PROCEDURAL DIARRHOEA [None]
  - RESPIRATORY TRACT CONGESTION [None]
  - RHEUMATOID ARTHRITIS [None]
  - SYNOVITIS [None]
